FAERS Safety Report 16308853 (Version 3)
Quarter: 2025Q3

REPORT INFORMATION
  Report Type: Spontaneous
  Country: GB (occurrence: GB)
  Receive Date: 20190514
  Receipt Date: 20250910
  Transmission Date: 20251021
  Serious: Yes (Life-Threatening, Hospitalization, Other)
  Sender: AUROBINDO
  Company Number: GB-AUROBINDO-AUR-APL-2019-026398

PATIENT
  Age: 44 Year
  Sex: Male

DRUGS (2)
  1. OLANZAPINE [Suspect]
     Active Substance: OLANZAPINE
     Indication: Schizophrenia
     Route: 065
  2. METHADONE [Suspect]
     Active Substance: METHADONE HYDROCHLORIDE
     Indication: Schizophrenia
     Route: 065

REACTIONS (9)
  - Hyperglycaemic hyperosmolar nonketotic syndrome [Recovered/Resolved]
  - Type 2 diabetes mellitus [Recovering/Resolving]
  - Coma [Recovered/Resolved]
  - Hyperglycaemia [Recovered/Resolved]
  - Weight increased [Unknown]
  - Insulin resistance [Recovered/Resolved]
  - Blood glucose increased [Unknown]
  - Loss of consciousness [Unknown]
  - Blood sodium increased [Unknown]
